FAERS Safety Report 4658672-2 (Version None)
Quarter: 2005Q2

REPORT INFORMATION
  Report Type: 
  Country: None (occurrence: None)
  Receive Date: 20050509
  Receipt Date: 20050422
  Transmission Date: 20051028
  Serious: Yes (Other)
  Sender: FDA-Public Use
  Company Number: 2005-DE-01554GD

PATIENT
  Sex: 0

DRUGS (2)
  1. DIAZEPAM [Suspect]
     Dosage: IU
     Route: 015
  2. BUTYROPHENONE [Suspect]
     Dosage: IU
     Route: 015

REACTIONS (6)
  - ARRHYTHMIA NEONATAL [None]
  - COMPLICATIONS OF MATERNAL EXPOSURE TO THERAPEUTIC DRUGS [None]
  - DRUG EXPOSURE DURING PREGNANCY [None]
  - HYPERTONIA NEONATAL [None]
  - IRRITABILITY [None]
  - NEONATAL DISORDER [None]
